FAERS Safety Report 23154433 (Version 2)
Quarter: 2023Q4

REPORT INFORMATION
  Report Type: Spontaneous
  Country: RU (occurrence: RU)
  Receive Date: 20231107
  Receipt Date: 20231122
  Transmission Date: 20240109
  Serious: Yes (Other)
  Sender: FDA-Public Use
  Company Number: RU-GE HEALTHCARE-2023CSU009868

PATIENT
  Age: 67 Year
  Sex: Male
  Weight: 80 kg

DRUGS (3)
  1. OMNISCAN [Suspect]
     Active Substance: GADODIAMIDE
     Indication: Magnetic resonance imaging abdominal
     Dosage: 15 ML, ONCE, USING AN INJECTOR
     Route: 040
     Dates: start: 20231029, end: 20231029
  2. OMNISCAN [Suspect]
     Active Substance: GADODIAMIDE
     Indication: Gallbladder disorder
  3. OMNISCAN [Suspect]
     Active Substance: GADODIAMIDE
     Indication: Cholecystitis chronic

REACTIONS (7)
  - Loss of consciousness [Recovered/Resolved]
  - Blood pressure decreased [Recovered/Resolved]
  - Disorientation [Recovered/Resolved]
  - Pallor [Recovered/Resolved]
  - Tremor [Recovered/Resolved]
  - Dizziness [Recovered/Resolved]
  - Nausea [Recovered/Resolved]

NARRATIVE: CASE EVENT DATE: 20231029
